FAERS Safety Report 5695166-X (Version None)
Quarter: 2008Q2

REPORT INFORMATION
  Report Type: 
  Country: None (occurrence: None)
  Receive Date: 20080404
  Receipt Date: 20080323
  Transmission Date: 20081010
  Serious: Yes (Other)
  Sender: FDA-Public Use
  Company Number: US-PFIZER INC-2008026267

PATIENT
  Sex: Female
  Weight: 54.09 kg

DRUGS (5)
  1. LYRICA [Suspect]
     Indication: NEURALGIA
  2. SYNTHROID [Concomitant]
  3. DYAZIDE [Concomitant]
  4. ULTRAM [Concomitant]
  5. IBANDRONATE SODIUM [Concomitant]

REACTIONS (2)
  - FATIGUE [None]
  - VISION BLURRED [None]
